FAERS Safety Report 8072878-4 (Version None)
Quarter: 2012Q1

REPORT INFORMATION
  Report Type: 
  Country: None (occurrence: None)
  Receive Date: 20120126
  Receipt Date: 20120119
  Transmission Date: 20120608
  Serious: Yes (Hospitalization)
  Sender: FDA-Public Use
  Company Number: US-BAYER-2010-004619

PATIENT
  Sex: Female
  Weight: 64.853 kg

DRUGS (1)
  1. YAZ [Suspect]
     Indication: CONTRACEPTION
     Dosage: UNK
     Route: 048
     Dates: start: 20061101, end: 20071201

REACTIONS (8)
  - DEPRESSION [None]
  - GASTROINTESTINAL DISORDER [None]
  - POST CHOLECYSTECTOMY SYNDROME [None]
  - MENTAL DISORDER [None]
  - CHOLELITHIASIS [None]
  - GALLBLADDER PAIN [None]
  - ANXIETY [None]
  - THROMBOSIS [None]
